FAERS Safety Report 25627647 (Version 1)
Quarter: 2025Q3

REPORT INFORMATION
  Report Type: Spontaneous
  Country: EU (occurrence: EU)
  Receive Date: 20250731
  Receipt Date: 20250731
  Transmission Date: 20251021
  Serious: Yes (Hospitalization)
  Sender: MACLEODS
  Company Number: EU-MLMSERVICE-20250716-PI582141-00198-2

PATIENT

DRUGS (13)
  1. LEVOFLOXACIN [Suspect]
     Active Substance: LEVOFLOXACIN
     Indication: Pulmonary tuberculosis
     Route: 065
  2. LINEZOLID [Suspect]
     Active Substance: LINEZOLID
     Indication: Pulmonary tuberculosis
     Route: 065
  3. LINEZOLID [Suspect]
     Active Substance: LINEZOLID
     Route: 065
  4. PYRAZINAMIDE [Suspect]
     Active Substance: PYRAZINAMIDE
     Indication: Pulmonary tuberculosis
     Route: 065
  5. PYRAZINAMIDE [Suspect]
     Active Substance: PYRAZINAMIDE
     Route: 065
  6. ISONIAZID [Suspect]
     Active Substance: ISONIAZID
     Indication: Pulmonary tuberculosis
     Route: 065
  7. CEFTRIAXONE [Suspect]
     Active Substance: CEFTRIAXONE
     Indication: Pulmonary tuberculosis
     Route: 065
  8. ETHAMBUTOL [Suspect]
     Active Substance: ETHAMBUTOL HYDROCHLORIDE
     Indication: Pulmonary tuberculosis
     Route: 065
  9. ETHAMBUTOL [Suspect]
     Active Substance: ETHAMBUTOL HYDROCHLORIDE
     Route: 065
  10. RIFAMPIN [Suspect]
     Active Substance: RIFAMPIN
     Indication: Pulmonary tuberculosis
     Route: 065
  11. CLOFAZIMINE [Suspect]
     Active Substance: CLOFAZIMINE
     Indication: Pulmonary tuberculosis
     Route: 065
  12. AMIKACIN [Suspect]
     Active Substance: AMIKACIN
     Indication: Pulmonary tuberculosis
     Route: 065
  13. DELAMANID [Suspect]
     Active Substance: DELAMANID
     Indication: Pulmonary tuberculosis
     Route: 065

REACTIONS (8)
  - Rash erythematous [Unknown]
  - Dyspnoea [Recovered/Resolved]
  - Polyneuropathy [Unknown]
  - Pigmentation disorder [Unknown]
  - Drug hypersensitivity [Unknown]
  - Hypersensitivity [Unknown]
  - Urticaria [Unknown]
  - Rash [Recovering/Resolving]
